FAERS Safety Report 6334758-1 (Version None)
Quarter: 2009Q3

REPORT INFORMATION
  Report Type: 
  Country: None (occurrence: None)
  Receive Date: 20090831
  Receipt Date: 20090821
  Transmission Date: 20100115
  Serious: Yes (Hospitalization)
  Sender: FDA-Public Use
  Company Number: PHHO2009JP09611

PATIENT
  Sex: Female
  Weight: 49 kg

DRUGS (5)
  1. EXELON [Suspect]
     Indication: DEMENTIA ALZHEIMER'S TYPE
     Dosage: 10CM^2
     Route: 062
     Dates: start: 20080623, end: 20090729
  2. AMARYL [Concomitant]
     Indication: DIABETES MELLITUS
     Dosage: UNK
  3. OLMETEC [Concomitant]
     Indication: HYPERTENSION
     Dosage: UNK
  4. CONIEL [Concomitant]
     Indication: HYPERTENSION
     Dosage: UNK
  5. NERISONA [Concomitant]
     Indication: RASH
     Dosage: UNK

REACTIONS (4)
  - DECREASED APPETITE [None]
  - DIARRHOEA [None]
  - NAUSEA [None]
  - VOMITING [None]
